FAERS Safety Report 8921851 (Version 1)
Quarter: 2012Q4

REPORT INFORMATION
  Report Type: 
  Country: JP (occurrence: JP)
  Receive Date: 20121121
  Receipt Date: 20121121
  Transmission Date: 20130627
  Serious: No
  Sender: FDA-Public Use
  Company Number: JP-WATSON-2012-20062

PATIENT
  Age: 9 Year
  Sex: Male
  Weight: 27 kg

DRUGS (4)
  1. TOPIRAMATE [Suspect]
     Indication: EPILEPSY
     Dosage: UNK
     Route: 065
  2. VALPROATE SODIUM [Concomitant]
     Indication: EPILEPSY
     Dosage: UNK
     Route: 065
  3. ZONISAMIDE [Concomitant]
     Indication: EPILEPSY
     Dosage: UNK
     Route: 065
  4. CLOBAZAM [Concomitant]
     Indication: EPILEPSY
     Dosage: UNK UNK, unknown
     Route: 065

REACTIONS (2)
  - Hypothermia [Unknown]
  - Decreased activity [Unknown]
